FAERS Safety Report 9296239 (Version 2)
Quarter: 2013Q2

REPORT INFORMATION
  Report Type: Spontaneous
  Country: ES (occurrence: ES)
  Receive Date: 20130517
  Receipt Date: 20130603
  Transmission Date: 20140414
  Serious: Yes (Hospitalization)
  Sender: FDA-Public Use
  Company Number: ES-GLAXOSMITHKLINE-B0892303A

PATIENT
  Age: 87 Year
  Sex: Female

DRUGS (10)
  1. REVOLADE [Suspect]
     Indication: IDIOPATHIC THROMBOCYTOPENIC PURPURA
     Dosage: 25MG PER DAY
     Route: 048
     Dates: start: 20130408, end: 20130425
  2. OMEPRAZOL [Concomitant]
     Route: 065
  3. FUROSEMIDE [Concomitant]
     Route: 065
  4. PAROXETINE [Concomitant]
     Route: 065
  5. NITROGLYCERINE [Concomitant]
     Route: 065
  6. ADOLONTA [Concomitant]
     Route: 065
  7. HALOPERIDOL [Concomitant]
     Route: 065
  8. B12 VITAMIN [Concomitant]
     Route: 065
  9. ANTICOAGULANTS [Concomitant]
     Route: 065
  10. CLOPIDOGREL [Concomitant]
     Route: 065

REACTIONS (2)
  - Pulmonary embolism [Recovering/Resolving]
  - Dyspnoea [Unknown]
